FAERS Safety Report 4539742-6 (Version None)
Quarter: 2004Q4

REPORT INFORMATION
  Report Type: 
  Country: None (occurrence: None)
  Receive Date: 20041223
  Receipt Date: 20041124
  Transmission Date: 20050328
  Serious: Yes (Death)
  Sender: FDA-Public Use
  Company Number: ENTC2004-0219

PATIENT
  Sex: Male

DRUGS (8)
  1. STALEVO 100 [Suspect]
     Indication: PARKINSON'S DISEASE
     Dosage: 600 MG (150 MG, 4 IN 1 D), ORAL
     Route: 048
     Dates: start: 20040415
  2. CABASERIL [Concomitant]
  3. COSAAR PLUS [Concomitant]
  4. LANITOP [Concomitant]
  5. SAROTEN [Concomitant]
  6. DIPENTUM [Concomitant]
  7. TRESLEEN [Concomitant]
  8. LASIX [Concomitant]

REACTIONS (1)
  - CARDIAC DEATH [None]
